FAERS Safety Report 4862564-3 (Version None)
Quarter: 2005Q4

REPORT INFORMATION
  Report Type: 
  Country: None (occurrence: None)
  Receive Date: 20051221
  Receipt Date: 20051214
  Transmission Date: 20060501
  Serious: Yes (Hospitalization)
  Sender: FDA-Public Use
  Company Number: FR-GLAXOSMITHKLINE-B0403835A

PATIENT
  Age: 56 Year
  Sex: Male

DRUGS (9)
  1. AUGMENTIN [Suspect]
     Indication: CAUSTIC INJURY
     Dosage: 3G PER DAY
     Route: 048
     Dates: start: 20050830, end: 20050906
  2. CLAVENTIN [Suspect]
     Indication: CAUSTIC INJURY
     Dosage: 15G PER DAY
     Route: 042
     Dates: start: 20050910, end: 20050924
  3. CIFLOX [Suspect]
     Dosage: 1G PER DAY
     Route: 048
     Dates: start: 20050924, end: 20051007
  4. TIENAM [Suspect]
     Dosage: 1.5G PER DAY
     Route: 042
     Dates: start: 20050906, end: 20050910
  5. MOPRAL [Concomitant]
     Route: 065
     Dates: end: 20051007
  6. ACETAMINOPHEN [Concomitant]
     Route: 065
     Dates: end: 20051007
  7. EXTRANASE [Concomitant]
     Route: 065
     Dates: end: 20050919
  8. NEXIUM [Concomitant]
     Dosage: 20MG PER DAY
     Route: 065
     Dates: end: 20051007
  9. FONZYLANE [Concomitant]
     Dosage: 2UNIT PER DAY
     Route: 065
     Dates: end: 20051007

REACTIONS (6)
  - ANOREXIA [None]
  - CHROMATURIA [None]
  - FAECES DISCOLOURED [None]
  - HEPATITIS CHOLESTATIC [None]
  - JAUNDICE [None]
  - PRURITUS [None]
